FAERS Safety Report 9373206 (Version 1)
Quarter: 2013Q2

REPORT INFORMATION
  Report Type: Spontaneous
  Country: US (occurrence: US)
  Receive Date: 20130627
  Receipt Date: 20130627
  Transmission Date: 20140414
  Serious: Yes (Hospitalization)
  Sender: FDA-Public Use
  Company Number: US-GLAXOSMITHKLINE-A0789240A

PATIENT
  Age: 55 Year
  Sex: Female
  Weight: 56.8 kg

DRUGS (1)
  1. AVANDARYL [Suspect]
     Indication: TYPE 2 DIABETES MELLITUS
     Dosage: 1TAB PER DAY
     Route: 048
     Dates: start: 2004

REACTIONS (2)
  - Myocardial infarction [Not Recovered/Not Resolved]
  - Blood glucose fluctuation [Unknown]
